FAERS Safety Report 6988465-2 (Version None)
Quarter: 2010Q3

REPORT INFORMATION
  Report Type: 
  Country: None (occurrence: None)
  Receive Date: 20100916
  Receipt Date: 20100915
  Transmission Date: 20110219
  Serious: Yes (Hospitalization)
  Sender: FDA-Public Use
  Company Number: US-ABBOTT-10P-163-0669100-00

PATIENT
  Sex: Female

DRUGS (14)
  1. HUMIRA [Suspect]
     Indication: CROHN'S DISEASE
     Route: 058
     Dates: start: 20100101
  2. DILTIAZEM [Concomitant]
     Indication: HYPERTENSION
  3. HYDROCHLOROTHIAZIDE [Concomitant]
     Indication: HYPERTENSION
  4. LISINOPRIL [Concomitant]
     Indication: HYPERTENSION
  5. LEVOTHROID [Concomitant]
     Indication: PRODUCT USED FOR UNKNOWN INDICATION
     Dosage: 125 MG ONE DAY, THEN 100MG THE NEXT DAY. ALTERNATE DOSES
  6. PREMPRO [Concomitant]
     Indication: PRODUCT USED FOR UNKNOWN INDICATION
  7. PANTOPRAZOLE [Concomitant]
     Indication: GASTROOESOPHAGEAL REFLUX DISEASE
  8. MULTI-VITAMIN [Concomitant]
     Indication: VITAMIN SUPPLEMENTATION
  9. ASACOL [Concomitant]
     Indication: BLOOD CHOLESTEROL INCREASED
     Dosage: 4 TABS THREE TIMES DAY
  10. AZOTHIOPRINE [Concomitant]
     Indication: PRODUCT USED FOR UNKNOWN INDICATION
  11. VITAMIN D [Concomitant]
     Indication: VITAMIN SUPPLEMENTATION
     Dosage: 5000 UNITS
  12. SIMVASTATIN [Concomitant]
     Indication: BLOOD CHOLESTEROL INCREASED
  13. PREDNISONE [Concomitant]
     Indication: CROHN'S DISEASE
     Dosage: DOSE IS BEING TAPPERED NOW
     Dates: start: 20100701
  14. ARED VITAMIN [Concomitant]
     Indication: VITAMIN SUPPLEMENTATION

REACTIONS (6)
  - ASTHENIA [None]
  - BLOOD GLUCOSE INCREASED [None]
  - DISTURBANCE IN ATTENTION [None]
  - FATIGUE [None]
  - VISION BLURRED [None]
  - WEIGHT DECREASED [None]
